FAERS Safety Report 9827212 (Version 2)
Quarter: 2014Q1

REPORT INFORMATION
  Report Type: Spontaneous
  Country: US (occurrence: US)
  Receive Date: 20140117
  Receipt Date: 20140117
  Transmission Date: 20141002
  Serious: No
  Sender: FDA-Public Use
  Company Number: US-BRISTOL-MYERS SQUIBB COMPANY-19476530

PATIENT
  Age: 70 Year
  Sex: Male

DRUGS (3)
  1. YERVOY [Suspect]
     Indication: METASTATIC MALIGNANT MELANOMA
     Dosage: 3RD INF: 24SEP13,200MG VIAL,2X50 MG VIALS,LOT#921873,EX DT: APR2015
     Route: 042
     Dates: start: 20130813
  2. ACETAMINOPHEN [Concomitant]
  3. DIPHENHYDRAMINE [Concomitant]

REACTIONS (1)
  - Rash [Recovering/Resolving]
